FAERS Safety Report 14625301 (Version 1)
Quarter: 2018Q1

REPORT INFORMATION
  Report Type: Spontaneous
  Country: US (occurrence: US)
  Receive Date: 20180312
  Receipt Date: 20180312
  Transmission Date: 20180509
  Serious: No
  Sender: FDA-Public Use
  Company Number: US-ENDO PHARMACEUTICALS INC-2017-003585

PATIENT
  Sex: Female

DRUGS (2)
  1. METHOCARBAMOL TABLETS [Suspect]
     Active Substance: METHOCARBAMOL
     Indication: PRODUCT USED FOR UNKNOWN INDICATION
     Dosage: UNK, QHS, PATIENT TAKES AS NEEDED
     Route: 065
  2. XELJANZ [Suspect]
     Active Substance: TOFACITINIB CITRATE
     Indication: PRODUCT USED FOR UNKNOWN INDICATION
     Dosage: UNK, AFTER BREAKFAST OR BY LUNCH
     Route: 065

REACTIONS (3)
  - Drug dose omission [Unknown]
  - Arthralgia [Unknown]
  - Joint stiffness [Unknown]
